FAERS Safety Report 11056537 (Version 2)
Quarter: 2015Q2

REPORT INFORMATION
  Report Type: Spontaneous
  Country: US (occurrence: US)
  Receive Date: 20150422
  Receipt Date: 20150524
  Transmission Date: 20150821
  Serious: No
  Sender: FDA-Public Use
  Company Number: US-JNJFOC-20140701718

PATIENT
  Sex: Female

DRUGS (12)
  1. ASPIRIN. [Concomitant]
     Active Substance: ASPIRIN
  2. TRAZODONE [Concomitant]
     Active Substance: TRAZODONE HYDROCHLORIDE
  3. INVOKANA [Suspect]
     Active Substance: CANAGLIFLOZIN
     Indication: PRODUCT USED FOR UNKNOWN INDICATION
     Route: 065
     Dates: start: 201402
  4. VITAMIN D [Concomitant]
     Active Substance: CHOLECALCIFEROL
  5. METFORMIN [Concomitant]
     Active Substance: METFORMIN HYDROCHLORIDE
  6. CYMBALTA [Concomitant]
     Active Substance: DULOXETINE HYDROCHLORIDE
  7. VITAMIN B12 [Concomitant]
     Active Substance: CYANOCOBALAMIN
  8. HUMULIN INSULIN [Concomitant]
     Active Substance: INSULIN HUMAN
  9. CRESTOR [Concomitant]
     Active Substance: ROSUVASTATIN CALCIUM
  10. WELLBUTRIN [Concomitant]
     Active Substance: BUPROPION HYDROCHLORIDE
  11. OXYCONTIN [Concomitant]
     Active Substance: OXYCODONE HYDROCHLORIDE
  12. INVOKANA [Suspect]
     Active Substance: CANAGLIFLOZIN
     Indication: PRODUCT USED FOR UNKNOWN INDICATION
     Route: 065

REACTIONS (3)
  - Glycosylated haemoglobin increased [Unknown]
  - Weight decreased [Unknown]
  - Blood glucose increased [Unknown]
